FAERS Safety Report 25181618 (Version 1)
Quarter: 2025Q2

REPORT INFORMATION
  Report Type: Report from Study
  Country: US (occurrence: US)
  Receive Date: 20250410
  Receipt Date: 20250410
  Transmission Date: 20250717
  Serious: Yes (Hospitalization)
  Sender: BIOCODEX
  Company Number: US-BIOCODEX2-2025000423

PATIENT
  Age: 3 Year
  Sex: Male
  Weight: 20.8 kg

DRUGS (4)
  1. DIACOMIT [Suspect]
     Active Substance: STIRIPENTOL
     Indication: Severe myoclonic epilepsy of infancy
     Dosage: 250MG BY MOUTH TWICE DAILY
     Dates: start: 20240925
  2. CLOBAZAM [Concomitant]
     Active Substance: CLOBAZAM
     Indication: Severe myoclonic epilepsy of infancy
     Route: 065
  3. VALPROIC ACID [Concomitant]
     Active Substance: VALPROIC ACID
     Indication: Product used for unknown indication
     Route: 065
  4. DIASTAT [Concomitant]
     Active Substance: DIAZEPAM
     Indication: Product used for unknown indication
     Route: 065

REACTIONS (3)
  - Seizure [Recovered/Resolved]
  - Product preparation issue [Unknown]
  - Off label use [Unknown]

NARRATIVE: CASE EVENT DATE: 20240925
